FAERS Safety Report 24093974 (Version 2)
Quarter: 2024Q3

REPORT INFORMATION
  Report Type: Spontaneous
  Country: UG (occurrence: UG)
  Receive Date: 20240716
  Receipt Date: 20240724
  Transmission Date: 20241016
  Serious: Yes (Hospitalization)
  Sender: MACLEODS
  Company Number: UG-MLMSERVICE-20240626-PI113774-00039-1

PATIENT

DRUGS (2)
  1. ACYCLOVIR [Suspect]
     Active Substance: ACYCLOVIR
     Indication: Anogenital warts
     Dosage: 400 MG THREE TIMES A DAY; FOR 4 MONTHS ON A CONTINUAL BASIS AT THE SAME DOSE AS AT INITIATION,
     Route: 048
     Dates: start: 2019
  2. EFAVIRENZ\LAMIVUDINE\TENOFOVIR DISOPROXIL FUMARATE [Concomitant]
     Active Substance: EFAVIRENZ\LAMIVUDINE\TENOFOVIR DISOPROXIL FUMARATE
     Indication: HIV infection
     Dosage: TDF/3TC/EFV
     Route: 065
     Dates: start: 2019

REACTIONS (3)
  - Anaemia megaloblastic [Recovered/Resolved]
  - Self-medication [Recovered/Resolved]
  - Maternal exposure during pregnancy [Unknown]

NARRATIVE: CASE EVENT DATE: 20190101
